FAERS Safety Report 4313604-1 (Version None)
Quarter: 2004Q1

REPORT INFORMATION
  Report Type: 
  Country: None (occurrence: None)
  Receive Date: 20040308
  Receipt Date: 20040225
  Transmission Date: 20041129
  Serious: Yes (Hospitalization)
  Sender: FDA-Public Use
  Company Number: US-BRISTOL-MYERS SQUIBB COMPANY-12519203

PATIENT

DRUGS (3)
  1. REYATAZ [Suspect]
  2. TENOFOVIR [Concomitant]
  3. LAMIVUDINE [Concomitant]

REACTIONS (3)
  - HEPATITIS C [None]
  - HEPATOMEGALY [None]
  - LIVER FUNCTION TEST ABNORMAL [None]
